FAERS Safety Report 16047356 (Version 2)
Quarter: 2019Q2

REPORT INFORMATION
  Report Type: Spontaneous
  Country: ES (occurrence: ES)
  Receive Date: 20190307
  Receipt Date: 20190402
  Transmission Date: 20190711
  Serious: Yes (Other)
  Sender: FDA-Public Use
  Company Number: ES-BEH-2019099963

PATIENT
  Age: 16 Year
  Sex: Male

DRUGS (2)
  1. HUMAN FACTOR VIII (NC) [Suspect]
     Active Substance: ANTIHEMOPHILIC FACTOR HUMAN
     Indication: FACTOR VIII DEFICIENCY
     Route: 065
  2. HUMAN FACTOR VIII (NC) [Suspect]
     Active Substance: ANTIHEMOPHILIC FACTOR HUMAN
     Indication: PROPHYLAXIS

REACTIONS (3)
  - Haemarthrosis [Unknown]
  - Factor VIII inhibition [Recovered/Resolved]
  - Haemorrhage [Unknown]
